FAERS Safety Report 9283874 (Version 2)
Quarter: 2013Q2

REPORT INFORMATION
  Report Type: Report from Study
  Country: US (occurrence: US)
  Receive Date: 20130510
  Receipt Date: 20130517
  Transmission Date: 20140414
  Serious: Yes (Other)
  Sender: FDA-Public Use
  Company Number: US-US-EMD SERONO, INC.-7209382

PATIENT
  Age: 50 Year
  Sex: Female
  Weight: 100 kg

DRUGS (1)
  1. REBIF [Suspect]
     Indication: MULTIPLE SCLEROSIS
     Route: 058
     Dates: start: 20120420, end: 201304

REACTIONS (11)
  - Hidradenitis [Not Recovered/Not Resolved]
  - Bronchitis viral [Unknown]
  - Acute sinusitis [Unknown]
  - Flank pain [Unknown]
  - Tremor [Recovering/Resolving]
  - Affect lability [Unknown]
  - Mechanical urticaria [Not Recovered/Not Resolved]
  - Somnolence [Unknown]
  - Multiple sclerosis relapse [Unknown]
  - Influenza like illness [Unknown]
  - Fatigue [Unknown]
